FAERS Safety Report 14530720 (Version 1)
Quarter: 2018Q1

REPORT INFORMATION
  Report Type: Spontaneous
  Country: US (occurrence: US)
  Receive Date: 20180214
  Receipt Date: 20180214
  Transmission Date: 20180509
  Serious: No
  Sender: FDA-Public Use
  Company Number: US-IPSEN BIOPHARMACEUTICALS, INC.-2017-00371

PATIENT
  Age: 68 Year
  Sex: Female

DRUGS (11)
  1. IBUPROFEN. [Concomitant]
     Active Substance: IBUPROFEN
  2. DIAZEPAM. [Concomitant]
     Active Substance: DIAZEPAM
  3. SULFAMETHOXAZOLE/TIMETHO [Concomitant]
  4. DYSPORT [Suspect]
     Active Substance: ABOBOTULINUMTOXINA
     Indication: TORTICOLLIS
     Dosage: NOT REPORTED
     Route: 065
     Dates: start: 20170116, end: 20170116
  5. FLOVENT DISCUS [Concomitant]
  6. HYDROCODONE/ACETAMINOHPEN [Concomitant]
  7. DOXYCYCLINE HYCLATE HCL [Concomitant]
  8. HYOSCYAMINE SULFATE. [Concomitant]
     Active Substance: HYOSCYAMINE SULFATE
  9. METRONIDAZOLE. [Concomitant]
     Active Substance: METRONIDAZOLE
  10. PRAVASTATIN SODIUM. [Concomitant]
     Active Substance: PRAVASTATIN SODIUM
  11. LOSARTAN POTASSIUM HYDROCHLORTHIAZIDE [Concomitant]

REACTIONS (1)
  - Hypersensitivity [Recovered/Resolved]

NARRATIVE: CASE EVENT DATE: 201701
